FAERS Safety Report 15002469 (Version 5)
Quarter: 2019Q1

REPORT INFORMATION
  Report Type: Report from Study
  Country: CA (occurrence: CA)
  Receive Date: 20180612
  Receipt Date: 20190219
  Transmission Date: 20190417
  Serious: Yes (Hospitalization, Other)
  Sender: FDA-Public Use
  Company Number: PHHY2016CA100505

PATIENT
  Age: 71 Year
  Sex: Female

DRUGS (5)
  1. SANDOSTATIN LAR DEPOT [Suspect]
     Active Substance: OCTREOTIDE ACETATE
     Dosage: 60 MG, QMO  (EVERY 4 WEEK)
     Route: 030
     Dates: start: 20170524
  2. SANDOSTATIN [Suspect]
     Active Substance: OCTREOTIDE ACETATE
     Indication: CARCINOID TUMOUR
     Dosage: UNK
     Route: 058
     Dates: start: 20160621
  3. AFINITOR [Suspect]
     Active Substance: EVEROLIMUS
     Indication: PRODUCT USED FOR UNKNOWN INDICATION
     Dosage: 10 MG, QD
     Route: 048
     Dates: start: 20190107
  4. CIPROFLOXACIN. [Concomitant]
     Active Substance: CIPROFLOXACIN
     Indication: PRODUCT USED FOR UNKNOWN INDICATION
     Route: 065
  5. SANDOSTATIN LAR DEPOT [Suspect]
     Active Substance: OCTREOTIDE ACETATE
     Indication: CARCINOID TUMOUR
     Dosage: 30 MG, QMO (EVERY 4 WEEK)
     Route: 030
     Dates: start: 20160624, end: 20170427

REACTIONS (21)
  - Blood glucose decreased [Unknown]
  - Body temperature decreased [Unknown]
  - Flatulence [Unknown]
  - Neuroendocrine tumour of the lung [Unknown]
  - Road traffic accident [Unknown]
  - Eating disorder [Unknown]
  - Pain in extremity [Unknown]
  - Intestinal obstruction [Unknown]
  - Syncope [Unknown]
  - Swelling face [Unknown]
  - Muscle spasms [Unknown]
  - Brain neoplasm [Unknown]
  - Second primary malignancy [Unknown]
  - Neoplasm [Not Recovered/Not Resolved]
  - Blood pressure systolic decreased [Unknown]
  - Gallbladder rupture [Unknown]
  - Pancreatitis [Unknown]
  - Malaise [Unknown]
  - Contusion [Unknown]
  - Diarrhoea [Unknown]
  - Fatigue [Unknown]

NARRATIVE: CASE EVENT DATE: 201606
